FAERS Safety Report 9148385 (Version 1)
Quarter: 2013Q1

REPORT INFORMATION
  Report Type: Spontaneous
  Country: US (occurrence: None)
  Receive Date: 20130219
  Receipt Date: 20130219
  Transmission Date: 20140127
  Serious: Yes (Death)
  Sender: FDA-Public Use
  Company Number: 2013-00349

PATIENT
  Age: 54 Year
  Sex: Female

DRUGS (12)
  1. LISINOPRIL (UNKNOWN) (LISINOPRIL) [Suspect]
     Indication: PRODUCT USED FOR UNKNOWN INDICATION
  2. AMITRIPTYLINE [Suspect]
  3. TRAZODONE [Suspect]
  4. GABAPENTIN (UNKNOWN) [Suspect]
  5. PHENTERMINE [Suspect]
  6. MONTELUKAST [Suspect]
  7. CETIRIZINE (UNKNOWN) [Suspect]
  8. DOCUSATE [Suspect]
  9. ACETAMINOPHEN AND DIPHENHYDRAMINE HCL [Suspect]
  10. PREDNISONE (UNKNOWN) [Suspect]
  11. HYDOXYZINE PAMOATE [Suspect]
  12. MAGNESIUM SALICYLATE/PAMABROM [Suspect]

REACTIONS (1)
  - Death [None]
